FAERS Safety Report 26162670 (Version 1)
Quarter: 2025Q4

REPORT INFORMATION
  Report Type: Report from Study
  Country: EU (occurrence: EU)
  Receive Date: 20251216
  Receipt Date: 20251216
  Transmission Date: 20260117
  Serious: Yes (Other)
  Sender: MYLAN
  Company Number: EU-MYLANLABS-2025M1105195

PATIENT
  Age: 14 Year
  Sex: Female

DRUGS (6)
  1. ZOLEDRONIC ACID [Suspect]
     Active Substance: ZOLEDRONIC ACID
     Indication: Hypercalcaemia
     Dosage: UNK, 6 MONTHS
  2. DENOSUMAB [Concomitant]
     Active Substance: DENOSUMAB
     Indication: Bone giant cell tumour
     Dosage: 60 MILLIGRAM, MONTHLY
  3. DENOSUMAB [Concomitant]
     Active Substance: DENOSUMAB
     Dosage: 60 MILLIGRAM, 6 MONTHS, DOSE TAPERED
  4. DENOSUMAB [Concomitant]
     Active Substance: DENOSUMAB
     Dosage: 60 MILLIGRAM, MONTHLY, 3 MONTHS
  5. DENOSUMAB [Concomitant]
     Active Substance: DENOSUMAB
     Dosage: 60 MILLIGRAM, BIMONTHLY
  6. DENOSUMAB [Concomitant]
     Active Substance: DENOSUMAB
     Dosage: 30 MILLIGRAM, Q3MONTHS, DOSE REDUCED

REACTIONS (2)
  - Drug ineffective [Unknown]
  - Off label use [Unknown]
